FAERS Safety Report 6408794-0 (Version None)
Quarter: 2009Q4

REPORT INFORMATION
  Report Type: 
  Country: None (occurrence: None)
  Receive Date: 20091021
  Receipt Date: 20091019
  Transmission Date: 20100525
  Serious: Yes (Other)
  Sender: FDA-Public Use
  Company Number: A0812608A

PATIENT
  Age: 6 Year
  Sex: Male

DRUGS (2)
  1. ZOFRAN [Suspect]
     Indication: DRUG USE FOR UNKNOWN INDICATION
     Route: 065
  2. TAMIFLU [Suspect]
     Indication: INFLUENZA
     Dosage: 48MG TWICE PER DAY
     Route: 048
     Dates: start: 20090924, end: 20090928

REACTIONS (3)
  - DRUG INEFFECTIVE [None]
  - PYREXIA [None]
  - VOMITING [None]
